FAERS Safety Report 19528537 (Version 1)
Quarter: 2021Q3

REPORT INFORMATION
  Report Type: Spontaneous
  Country: US (occurrence: US)
  Receive Date: 20210713
  Receipt Date: 20210713
  Transmission Date: 20211014
  Serious: No
  Sender: FDA-Public Use
  Company Number: US-MYOVANT SCIENCES GMBH-2021MYSCI0500344

PATIENT
  Sex: Male

DRUGS (1)
  1. ORGOVYX [Suspect]
     Active Substance: RELUGOLIX
     Indication: PROSTATE CANCER
     Dosage: 120 MILLIGRAM, QD
     Route: 048
     Dates: start: 20210520

REACTIONS (5)
  - Disturbance in attention [Unknown]
  - Flatulence [Unknown]
  - Decreased activity [Unknown]
  - Fatigue [Unknown]
  - Feeling abnormal [Unknown]
